FAERS Safety Report 9383495 (Version 6)
Quarter: 2013Q4

REPORT INFORMATION
  Report Type: Spontaneous
  Country: JP (occurrence: JP)
  Receive Date: 20130704
  Receipt Date: 20131226
  Transmission Date: 20140711
  Serious: Yes (Death, Life-Threatening, Hospitalization, Other)
  Sender: FDA-Public Use
  Company Number: JP-PFIZER INC-2013193619

PATIENT
  Age: 86 Year
  Sex: Female
  Weight: 48.3 kg

DRUGS (14)
  1. AZULFIDINE EN [Suspect]
     Indication: RHEUMATOID ARTHRITIS
     Dosage: 1000 MG, 1X/DAY
     Route: 048
     Dates: start: 20130502, end: 20130516
  2. CELECOX [Suspect]
     Indication: RHEUMATOID ARTHRITIS
     Dosage: 100 MG, 2X/DAY
     Route: 048
     Dates: start: 20130502, end: 20130516
  3. PREDNISOLONE [Suspect]
     Indication: TOXIC EPIDERMAL NECROLYSIS
     Dosage: 60 MG, UNK
     Dates: start: 20130519, end: 20130607
  4. PREDNISOLONE [Suspect]
     Dosage: 50 MG, UNK
     Dates: start: 20130608
  5. PREDONINE [Suspect]
     Indication: TOXIC EPIDERMAL NECROLYSIS
     Dosage: 40 MG, UNK
     Dates: start: 20130619, end: 20130628
  6. PREDONINE [Suspect]
     Dosage: 30 MG, UNK
     Dates: start: 20130629
  7. MUCOSTA [Concomitant]
     Indication: PROPHYLAXIS AGAINST GASTROINTESTINAL ULCER
     Dosage: 100 MG, 2X/DAY
     Route: 048
     Dates: end: 20130516
  8. PLAVIX [Concomitant]
     Indication: MYOCARDIAL INFARCTION
     Dosage: 75 MG, 1X/DAY
     Route: 048
     Dates: start: 20100514, end: 20130516
  9. ARICEPT [Concomitant]
     Indication: DEMENTIA
     Dosage: 5 MG, 1X/DAY
     Route: 048
     Dates: start: 20110627, end: 20130516
  10. AMLODIPINE OD [Concomitant]
     Indication: HYPERTENSION
     Dosage: 5 MG, 1X/DAY
     Route: 048
     Dates: start: 20100826, end: 20130516
  11. BRONICA [Concomitant]
     Dosage: 40 MG, 1X/DAY
     Route: 048
     Dates: start: 20100810, end: 20130516
  12. UNISIA [Concomitant]
     Indication: HYPERTENSION
     Dosage: 1 DF, 1X/DAY
     Route: 048
     Dates: start: 20120312, end: 20130516
  13. SENNOSIDE [Concomitant]
     Indication: CONSTIPATION
     Dosage: 12 MG, 3X/DAY
     Route: 048
     Dates: start: 20040731, end: 20130516
  14. FRANDOL [Concomitant]
     Indication: MYOCARDIAL INFARCTION
     Dosage: TRANSDERMAL TAPE ONE SHEET ONCE DAILY
     Route: 062
     Dates: start: 20110711

REACTIONS (10)
  - Septic shock [Fatal]
  - Toxic epidermal necrolysis [Recovered/Resolved with Sequelae]
  - Stevens-Johnson syndrome [Not Recovered/Not Resolved]
  - Altered state of consciousness [Unknown]
  - Activities of daily living impaired [Unknown]
  - Large intestinal ulcer [Recovered/Resolved]
  - Cytomegalovirus viraemia [Unknown]
  - Systemic candida [Unknown]
  - Lung disorder [Unknown]
  - Atrial fibrillation [Unknown]
